FAERS Safety Report 9621425 (Version 1)
Quarter: 2013Q4

REPORT INFORMATION
  Report Type: Spontaneous
  Country: US (occurrence: US)
  Receive Date: 20131015
  Receipt Date: 20131015
  Transmission Date: 20140711
  Serious: No
  Sender: FDA-Public Use
  Company Number: US-PFIZER INC-2013291252

PATIENT
  Sex: Male

DRUGS (2)
  1. ADVIL [Suspect]
     Indication: PAIN
     Dosage: 400 MG ( TAKING 2 TABLETS OF 200MG EACH), UNK
     Dates: start: 20130930, end: 201310
  2. ADVIL [Suspect]
     Indication: EAR PAIN

REACTIONS (1)
  - Malaise [Recovered/Resolved]
